FAERS Safety Report 7530493 (Version 2)
Quarter: 2018Q4

REPORT INFORMATION
  Report Type: Spontaneous
  Country: FR (occurrence: FR)
  Receive Date: 20100806
  Receipt Date: 20181011
  Transmission Date: 20190205
  Serious: Yes (Hospitalization)
  Sender: FDA-Public Use
  Company Number: FR-PFIZER INC-2010095051

PATIENT
  Age: 75 Year
  Sex: Male
  Weight: 70 kg

DRUGS (10)
  1. CATAPRESSAN [Concomitant]
     Active Substance: CLONIDINE
     Dosage: ONE DAILY DOSAGE FORM
  2. SPECIAFOLDINE [Concomitant]
     Active Substance: FOLIC ACID
     Dosage: ONE DAILY DOSAGE FORM
  3. SUTENT [Suspect]
     Active Substance: SUNITINIB MALATE
     Indication: RENAL CANCER
     Dosage: 50 MG, 1X/DAY, CYCLIC, 4 WEEKS OUT OF 6
     Route: 048
     Dates: start: 200910, end: 20100307
  4. NOCTRAN 10 [Concomitant]
     Active Substance: ACEPROMAZINE\ACEPROMETAZINE\CLORAZEPATE DIPOTASSIUM
     Dosage: 1 DF, 1X/DAY IN THE EVENING
  5. AMIODARONE [Concomitant]
     Active Substance: AMIODARONE
     Dosage: 1 DF, CYCLIC, 5 DAYS OUT OF 7
  6. AMLOR [Concomitant]
     Active Substance: AMLODIPINE BESYLATE
     Dosage: 10 MG PER DAY
  7. DI-ANTALVIC [Concomitant]
     Active Substance: ACETAMINOPHEN\PROPOXYPHENE HYDROCHLORIDE
     Dosage: 2 TABLETS TWICE DAILY
  8. INEXIUM [Concomitant]
     Active Substance: ESOMEPRAZOLE
     Dosage: 40 MG, 1X/DAY
  9. ARIXTRA [Concomitant]
     Active Substance: FONDAPARINUX SODIUM
     Dosage: 5 MG
  10. PRIMPERAN [Concomitant]
     Active Substance: METOCLOPRAMIDE HYDROCHLORIDE
     Dosage: UNK

REACTIONS (1)
  - Gastrointestinal toxicity [Recovered/Resolved]

NARRATIVE: CASE EVENT DATE: 200910
